FAERS Safety Report 6767488-2 (Version None)
Quarter: 2010Q2

REPORT INFORMATION
  Report Type: 
  Country: None (occurrence: None)
  Receive Date: 20100614
  Receipt Date: 20100602
  Transmission Date: 20101027
  Serious: Yes (Other)
  Sender: FDA-Public Use
  Company Number: PHHY2010GR35409

PATIENT
  Age: 81 Year
  Sex: Male

DRUGS (5)
  1. EXJADE [Suspect]
     Indication: IRON OVERLOAD
     Dosage: 500 MG
     Dates: start: 20100511, end: 20100525
  2. SINTROM [Concomitant]
  3. DIGOXIN [Concomitant]
  4. FRUMIL [Concomitant]
  5. EXELON [Concomitant]

REACTIONS (3)
  - DIARRHOEA [None]
  - OEDEMA [None]
  - PLEURAL EFFUSION [None]
